APPROVED DRUG PRODUCT: NEOMYCIN AND POLYMYXIN B SULFATES AND GRAMICIDIN
Active Ingredient: GRAMICIDIN; NEOMYCIN SULFATE; POLYMYXIN B SULFATE
Strength: 0.025MG/ML;EQ 1.75MG BASE/ML;10,000 UNITS/ML
Dosage Form/Route: SOLUTION/DROPS;OPHTHALMIC
Application: A064047 | Product #001 | TE Code: AT
Applicant: BAUSCH AND LOMB PHARMACEUTICALS INC
Approved: Jan 31, 1996 | RLD: No | RS: Yes | Type: RX